FAERS Safety Report 4809090-5 (Version None)
Quarter: 2005Q4

REPORT INFORMATION
  Report Type: 
  Country: None (occurrence: None)
  Receive Date: 20051024
  Receipt Date: 20051024
  Transmission Date: 20060501
  Serious: Yes (Other)
  Sender: FDA-Public Use
  Company Number: None

PATIENT
  Age: 76 Year
  Sex: Female

DRUGS (1)
  1. ALEVE [Suspect]
     Dosage: FIRST TIME

REACTIONS (5)
  - DRY MOUTH [None]
  - FEELING ABNORMAL [None]
  - PRURITUS [None]
  - SENSATION OF FOREIGN BODY [None]
  - TREMOR [None]
